FAERS Safety Report 4879818-7 (Version None)
Quarter: 2006Q1

REPORT INFORMATION
  Report Type: 
  Country: None (occurrence: None)
  Receive Date: 20060113
  Receipt Date: 20060105
  Transmission Date: 20060701
  Serious: Yes (Hospitalization)
  Sender: FDA-Public Use
  Company Number: US-JNJFOC-20060101140

PATIENT
  Sex: Female
  Weight: 60.78 kg

DRUGS (6)
  1. DURAGESIC-100 [Suspect]
     Route: 062
     Dates: start: 19980101, end: 20051101
  2. DURAGESIC-100 [Suspect]
     Route: 062
     Dates: start: 19980101, end: 20051101
  3. FENTANYL [Suspect]
     Route: 062
  4. CODEINE [Concomitant]
  5. HYDROCODONE BITARTRATE [Concomitant]
     Indication: PAIN
     Route: 048
     Dates: end: 20050101
  6. PREMARIN [Concomitant]
     Indication: HYSTERECTOMY
     Route: 048

REACTIONS (7)
  - COLITIS [None]
  - GASTROINTESTINAL STOMA COMPLICATION [None]
  - INTESTINAL OBSTRUCTION [None]
  - MALNUTRITION [None]
  - THERAPEUTIC RESPONSE DECREASED [None]
  - VOMITING [None]
  - WEIGHT DECREASED [None]
